FAERS Safety Report 14948261 (Version 2)
Quarter: 2018Q2

REPORT INFORMATION
  Report Type: Spontaneous
  Country: US (occurrence: US)
  Receive Date: 20180529
  Receipt Date: 20180621
  Transmission Date: 20180711
  Serious: No
  Sender: FDA-Public Use
  Company Number: US-PFIZER INC-2018219139

PATIENT
  Age: 53 Year
  Sex: Male

DRUGS (2)
  1. EUCRISA [Suspect]
     Active Substance: CRISABOROLE
     Dosage: UNK, 2X/DAY (APPLY TWICE DAILY)
     Route: 061
     Dates: start: 20180509
  2. EUCRISA [Suspect]
     Active Substance: CRISABOROLE
     Indication: DERMATITIS ATOPIC
     Dosage: UNK, 2X/DAY, (APPLY TWICE DAILY TO AFFECTED AREAS)
     Route: 061
     Dates: start: 201805, end: 201805

REACTIONS (1)
  - Drug ineffective [Unknown]
